FAERS Safety Report 8273996-8 (Version None)
Quarter: 2012Q2

REPORT INFORMATION
  Report Type: 
  Country: None (occurrence: None)
  Receive Date: 20120411
  Receipt Date: 20120402
  Transmission Date: 20120825
  Serious: Yes (Hospitalization, Other)
  Sender: FDA-Public Use
  Company Number: US-JNJFOC-20120401458

PATIENT
  Sex: Female
  Weight: 110.22 kg

DRUGS (10)
  1. NUCYNTA [Suspect]
     Indication: ARTHRITIS
     Dosage: 100 MG 10 TIMES A DAY
     Route: 048
     Dates: start: 20110601
  2. NUCYNTA ER [Suspect]
     Indication: ARTHRITIS
     Dosage: 100 MG TWICE A DAY
     Route: 048
     Dates: start: 20111001
  3. MORPHINE [Suspect]
     Indication: ARTHRITIS
     Dosage: 40 MG AS NEEDED
     Route: 048
     Dates: start: 20110701, end: 20111001
  4. NUCYNTA [Suspect]
     Dosage: 100 MG 6 TIMES A DAY
     Route: 048
     Dates: start: 20090101, end: 20110601
  5. NUCYNTA ER [Suspect]
     Dosage: 250 MG TWICE A DAY
     Route: 048
     Dates: end: 20120329
  6. PRILOSEC [Suspect]
     Indication: GASTROOESOPHAGEAL REFLUX DISEASE
     Dosage: 40 MG DAILY
     Route: 048
     Dates: start: 20110801
  7. PRILOSEC [Suspect]
     Indication: HIATUS HERNIA
     Dosage: 40 MG DAILY
     Route: 048
     Dates: start: 20110801
  8. XIFAXAN [Suspect]
     Indication: HEPATIC ENCEPHALOPATHY
     Route: 048
     Dates: start: 20120201
  9. TOPAMAX [Suspect]
     Indication: FIBROMYALGIA
     Dosage: 100 MG TWICE A DAY
     Route: 048
     Dates: start: 20100101, end: 20120201
  10. MORPHINE [Suspect]
     Dosage: 15 MG FOUR TIMES A DAY
     Route: 048
     Dates: start: 20120330

REACTIONS (12)
  - ABNORMAL LOSS OF WEIGHT [None]
  - COMA [None]
  - HEPATOTOXICITY [None]
  - GASTROOESOPHAGEAL REFLUX DISEASE [None]
  - FOOT FRACTURE [None]
  - HEPATIC ENCEPHALOPATHY [None]
  - VOMITING [None]
  - HYPERSOMNIA [None]
  - HIATUS HERNIA [None]
  - DRUG INEFFECTIVE [None]
  - MALAISE [None]
  - FEELING ABNORMAL [None]
